FAERS Safety Report 8183585-1 (Version None)
Quarter: 2012Q1

REPORT INFORMATION
  Report Type: 
  Country: None (occurrence: None)
  Receive Date: 20120305
  Receipt Date: 20120301
  Transmission Date: 20120608
  Serious: Yes (Hospitalization)
  Sender: FDA-Public Use
  Company Number: US-B.I. PHARMACEUTICALS,INC./RIDGEFIELD-2012-BP-03959BP

PATIENT
  Sex: Female

DRUGS (12)
  1. VITAMIN D [Concomitant]
     Indication: PROPHYLAXIS
     Route: 048
  2. COMBIVENT [Suspect]
     Indication: CHRONIC OBSTRUCTIVE PULMONARY DISEASE
     Dosage: 8 PUF
     Route: 055
     Dates: start: 20000101
  3. PROPYLENE GLYCOL [Concomitant]
     Indication: DRY EYE
     Route: 031
  4. METAMUCIL-2 [Concomitant]
     Indication: CONSTIPATION
     Route: 048
  5. PREDNISONE TAB [Concomitant]
     Indication: CHRONIC OBSTRUCTIVE PULMONARY DISEASE
     Route: 048
  6. IBUPROFEN [Concomitant]
     Indication: PAIN IN EXTREMITY
     Route: 048
  7. BONIVA [Concomitant]
     Indication: ARTHRITIS
     Route: 048
  8. CALCIUM [Concomitant]
     Indication: PROPHYLAXIS
     Route: 048
  9. ADVAIR DISKUS 100/50 [Concomitant]
     Indication: CHRONIC OBSTRUCTIVE PULMONARY DISEASE
     Dosage: 2 PUF
     Route: 055
     Dates: start: 20080101
  10. SPIRIVA [Suspect]
     Indication: CHRONIC OBSTRUCTIVE PULMONARY DISEASE
     Dosage: 18 MCG
     Route: 055
     Dates: start: 20040101
  11. PROAIR HFA [Concomitant]
     Indication: CHRONIC OBSTRUCTIVE PULMONARY DISEASE
     Dosage: 8 PUF
     Route: 055
  12. MULTI-VITAMIN [Concomitant]
     Indication: PROPHYLAXIS
     Route: 048

REACTIONS (3)
  - PNEUMONIA [None]
  - GLAUCOMA [None]
  - AGE-RELATED MACULAR DEGENERATION [None]
